FAERS Safety Report 9881612 (Version 2)
Quarter: 2014Q1

REPORT INFORMATION
  Report Type: Spontaneous
  Country: US (occurrence: US)
  Receive Date: 20140207
  Receipt Date: 20140207
  Transmission Date: 20141002
  Serious: Yes (Other)
  Sender: FDA-Public Use
  Company Number: US-GE HEALTHCARE MEDICAL DIAGNOSTICS-OSCN-PR-1104S-0113

PATIENT
  Age: 54 Year
  Sex: Male

DRUGS (2)
  1. OMNISCAN [Suspect]
     Indication: PRODUCT USED FOR UNKNOWN INDICATION
     Route: 042
     Dates: start: 20031120, end: 20031120
  2. GADOLINIUM (UNSPECIFIED) [Suspect]
     Indication: PRODUCT USED FOR UNKNOWN INDICATION
     Dates: start: 20050816, end: 20050816

REACTIONS (1)
  - Nephrogenic systemic fibrosis [Not Recovered/Not Resolved]
